FAERS Safety Report 9706583 (Version 1)
Quarter: 2013Q4

REPORT INFORMATION
  Report Type: Spontaneous
  Country: US (occurrence: US)
  Receive Date: 20131125
  Receipt Date: 20131125
  Transmission Date: 20140711
  Serious: Yes (Hospitalization)
  Sender: FDA-Public Use
  Company Number: US-JNJFOC-20131110728

PATIENT
  Sex: Female

DRUGS (3)
  1. REMICADE [Suspect]
     Indication: PRODUCT USED FOR UNKNOWN INDICATION
     Dosage: PATIENT STARTED INFLIXIMAB 7 OR 8 YEARS AGO.
     Route: 042
  2. FENTANYL [Suspect]
     Indication: PAIN
     Route: 062
     Dates: end: 201310
  3. FENTANYL [Suspect]
     Indication: PAIN
     Route: 062
     Dates: start: 201310

REACTIONS (6)
  - Fall [Recovered/Resolved]
  - Spinal fracture [Unknown]
  - Tremor [Not Recovered/Not Resolved]
  - Back pain [Not Recovered/Not Resolved]
  - Infusion related reaction [Recovered/Resolved]
  - Dyspnoea [Recovered/Resolved]
